FAERS Safety Report 5332342-X (Version None)
Quarter: 2007Q2

REPORT INFORMATION
  Report Type: 
  Country: None (occurrence: None)
  Receive Date: 20070523
  Receipt Date: 20070522
  Transmission Date: 20071010
  Serious: Yes (Other)
  Sender: FDA-Public Use
  Company Number: A0651942A

PATIENT
  Age: 46 Year
  Sex: Female

DRUGS (4)
  1. COMBIVIR [Suspect]
     Dosage: 2TAB PER DAY
     Route: 048
     Dates: start: 20060610, end: 20060710
  2. VIREAD [Concomitant]
  3. NEURONTIN [Concomitant]
  4. ZOLOFT [Concomitant]

REACTIONS (4)
  - ABDOMINAL DISTENSION [None]
  - DIARRHOEA [None]
  - GASTRITIS HAEMORRHAGIC [None]
  - PAIN [None]
